FAERS Safety Report 6249013-8 (Version None)
Quarter: 2009Q2

REPORT INFORMATION
  Report Type: 
  Country: None (occurrence: None)
  Receive Date: 20090624
  Receipt Date: 20090624
  Transmission Date: 20091009
  Serious: No
  Sender: FDA-Public Use
  Company Number: None

PATIENT
  Age: 9 Year
  Sex: Male
  Weight: 34.0198 kg

DRUGS (1)
  1. DEXAMETHASONE [Suspect]

REACTIONS (4)
  - ANGER [None]
  - FEELING ABNORMAL [None]
  - MUSCLE TWITCHING [None]
  - PRURITUS [None]
